FAERS Safety Report 8004519-6 (Version None)
Quarter: 2011Q4

REPORT INFORMATION
  Report Type: 
  Country: None (occurrence: None)
  Receive Date: 20111221
  Receipt Date: 20111221
  Transmission Date: 20120403
  Serious: Yes (Hospitalization)
  Sender: FDA-Public Use
  Company Number: None

PATIENT
  Age: 51 Year
  Sex: Male
  Weight: 81.9 kg

DRUGS (13)
  1. DIGOXIN [Suspect]
     Indication: CARDIAC FAILURE CONGESTIVE
     Dosage: 0.125 MG QAM PO CHRONIC
     Route: 048
  2. AMIODARONE HCL [Suspect]
     Indication: ARRHYTHMIA
     Dosage: 200MG Q AM PO
     Route: 048
  3. COREG [Concomitant]
  4. NASONEX [Concomitant]
  5. OMEPRAZOLE [Concomitant]
  6. SYNTHROID [Concomitant]
  7. LIPITOR [Concomitant]
  8. LASIX [Concomitant]
  9. LISINOPRIL [Concomitant]
  10. KLOR-CON [Concomitant]
  11. ASPIRIN [Concomitant]
  12. LORATADINE [Concomitant]
  13. SPIRONOLACTONE [Concomitant]

REACTIONS (1)
  - TOXICITY TO VARIOUS AGENTS [None]
